FAERS Safety Report 6690510-9 (Version None)
Quarter: 2010Q2

REPORT INFORMATION
  Report Type: 
  Country: None (occurrence: None)
  Receive Date: 20100420
  Receipt Date: 20100420
  Transmission Date: 20101027
  Serious: Yes (Hospitalization)
  Sender: FDA-Public Use
  Company Number: None

PATIENT
  Age: 72 Year
  Sex: Female
  Weight: 62.18 kg

DRUGS (1)
  1. SORAFENIB 200 MG BAYER HEALTHCARE PHARMACEUTICALS [Suspect]
     Indication: PANCREATIC CARCINOMA
     Dosage: 200 MG TWICE DAILY PO
     Route: 048
     Dates: start: 20090929, end: 20100326

REACTIONS (4)
  - ABDOMINAL PAIN [None]
  - DIARRHOEA [None]
  - PNEUMONIA [None]
  - TREMOR [None]
